FAERS Safety Report 9636032 (Version 1)
Quarter: 2013Q4

REPORT INFORMATION
  Report Type: Spontaneous
  Country: CO (occurrence: CO)
  Receive Date: 20131021
  Receipt Date: 20131021
  Transmission Date: 20140711
  Serious: Yes (Life-Threatening)
  Sender: FDA-Public Use
  Company Number: CO-UCBSA-100476

PATIENT
  Age: 60 Year
  Sex: Female

DRUGS (4)
  1. CERTOLIZUMAB PEGOL [Suspect]
     Indication: RHEUMATOID ARTHRITIS
     Route: 058
     Dates: start: 20110922, end: 20121227
  2. PREDNISOLONE [Concomitant]
     Dates: start: 20110922
  3. METHOTREXATE [Concomitant]
     Dates: start: 20110922
  4. CALCIUM [Concomitant]
     Dates: start: 20110922

REACTIONS (1)
  - Thyroid cancer [Unknown]
